FAERS Safety Report 15821313 (Version 2)
Quarter: 2019Q1

REPORT INFORMATION
  Report Type: Spontaneous
  Country: FR (occurrence: FR)
  Receive Date: 20190114
  Receipt Date: 20190123
  Transmission Date: 20190417
  Serious: Yes (Other)
  Sender: FDA-Public Use
  Company Number: FR-PFIZER INC-2019014942

PATIENT
  Age: 21 Year
  Sex: Male

DRUGS (1)
  1. SILDENAFIL CITRATE. [Suspect]
     Active Substance: SILDENAFIL CITRATE
     Indication: SEXUAL DYSFUNCTION
     Dosage: 1 DF, DAILY
     Route: 048
     Dates: start: 20181110, end: 20181111

REACTIONS (1)
  - Priapism [Unknown]

NARRATIVE: CASE EVENT DATE: 20181110
